FAERS Safety Report 5043282-8 (Version None)
Quarter: 2006Q2

REPORT INFORMATION
  Report Type: 
  Country: None (occurrence: None)
  Receive Date: 20060601
  Receipt Date: 20060228
  Transmission Date: 20061013
  Serious: No
  Sender: FDA-Public Use
  Company Number: 2006PV009483

PATIENT
  Sex: Female

DRUGS (2)
  1. BYETTA [Suspect]
     Indication: DIABETES MELLITUS
     Dosage: 5 MCG;BID;SC
     Route: 058
     Dates: start: 20060226
  2. METFORMIN [Concomitant]

REACTIONS (3)
  - BLOOD GLUCOSE DECREASED [None]
  - LARYNGITIS [None]
  - PHARYNGOLARYNGEAL PAIN [None]
